FAERS Safety Report 7375039-7 (Version None)
Quarter: 2011Q1

REPORT INFORMATION
  Report Type: 
  Country: None (occurrence: None)
  Receive Date: 20110325
  Receipt Date: 20110322
  Transmission Date: 20110831
  Serious: No
  Sender: FDA-Public Use
  Company Number: US-TEVA-272775USA

PATIENT
  Sex: Female
  Weight: 81.72 kg

DRUGS (1)
  1. COPAXONE [Suspect]
     Indication: MULTIPLE SCLEROSIS
     Route: 058
     Dates: start: 20090101

REACTIONS (3)
  - MALAISE [None]
  - CHEST PAIN [None]
  - DYSPNOEA [None]
